FAERS Safety Report 17622509 (Version 1)
Quarter: 2020Q2

REPORT INFORMATION
  Report Type: Spontaneous
  Country: US (occurrence: US)
  Receive Date: 20200402
  Receipt Date: 20200402
  Transmission Date: 20200713
  Serious: Yes (Death)
  Sender: FDA-Public Use
  Company Number: None

PATIENT
  Age: 89 Year
  Sex: Male

DRUGS (10)
  1. ATORVASTATIN [Concomitant]
     Active Substance: ATORVASTATIN
  2. LISINOPRIL. [Concomitant]
     Active Substance: LISINOPRIL
  3. SILDENAFIL 20MG TAB [Suspect]
     Active Substance: SILDENAFIL
     Indication: PULMONARY HYPERTENSION
     Dosage: ?          OTHER DOSE:STARTER DOSE;?
     Route: 048
     Dates: start: 20200221, end: 20200329
  4. WARFARIN [Concomitant]
     Active Substance: WARFARIN
  5. ASPIRIN. [Concomitant]
     Active Substance: ASPIRIN
  6. HYDRALAZINE [Concomitant]
     Active Substance: HYDRALAZINE HYDROCHLORIDE
  7. DOXYCYCL HYC [Concomitant]
  8. ISOSORB MONO [Concomitant]
     Active Substance: ISOSORBIDE MONONITRATE
  9. METOPROL SUC [Concomitant]
  10. FUROSEMIDE. [Concomitant]
     Active Substance: FUROSEMIDE

REACTIONS (1)
  - Death [None]

NARRATIVE: CASE EVENT DATE: 20200329
